FAERS Safety Report 21087964 (Version 5)
Quarter: 2022Q4

REPORT INFORMATION
  Report Type: Report from Study
  Country: BR (occurrence: BR)
  Receive Date: 20220715
  Receipt Date: 20221227
  Transmission Date: 20230113
  Serious: Yes (Other)
  Sender: FDA-Public Use
  Company Number: BR-JNJFOC-20220729029

PATIENT
  Sex: Female

DRUGS (8)
  1. SPRAVATO [Suspect]
     Active Substance: ESKETAMINE
     Indication: Major depression
  2. SPRAVATO [Suspect]
     Active Substance: ESKETAMINE
     Dates: start: 20220610
  3. ALPRAZOLAM [Suspect]
     Active Substance: ALPRAZOLAM
     Indication: Product used for unknown indication
     Dosage: USING FOR MORE THAN 6 YEARS
     Route: 065
  4. BUPROPION [Concomitant]
     Active Substance: BUPROPION
  5. ALPRAZOLAM [Concomitant]
     Active Substance: ALPRAZOLAM
  6. DEPAKOTE [Concomitant]
     Active Substance: DIVALPROEX SODIUM
  7. HALDOL [Concomitant]
     Active Substance: HALOPERIDOL
  8. VENLAFAXINE [Concomitant]
     Active Substance: VENLAFAXINE HYDROCHLORIDE

REACTIONS (8)
  - Suicidal ideation [Recovered/Resolved]
  - Memory impairment [Not Recovered/Not Resolved]
  - Stress [Unknown]
  - COVID-19 [Unknown]
  - Anxiety [Not Recovered/Not Resolved]
  - Depression [Not Recovered/Not Resolved]
  - Somnolence [Unknown]
  - Feeling abnormal [Unknown]

NARRATIVE: CASE EVENT DATE: 20220101
